FAERS Safety Report 19616152 (Version 1)
Quarter: 2021Q3

REPORT INFORMATION
  Report Type: Spontaneous
  Country: US (occurrence: US)
  Receive Date: 20210727
  Receipt Date: 20210727
  Transmission Date: 20211014
  Serious: No
  Sender: FDA-Public Use
  Company Number: US-ABBVIE-21K-163-3831105-00

PATIENT

DRUGS (1)
  1. SYNTHROID [Suspect]
     Active Substance: LEVOTHYROXINE SODIUM
     Indication: BLOOD THYROID STIMULATING HORMONE ABNORMAL
     Route: 048

REACTIONS (7)
  - Autoimmune thyroiditis [Unknown]
  - Blood triglycerides abnormal [Unknown]
  - Blood glucose abnormal [Unknown]
  - Blood cholesterol abnormal [Unknown]
  - Blood insulin abnormal [Unknown]
  - Confusional state [Unknown]
  - Low carbohydrate diet [Unknown]
